FAERS Safety Report 23250653 (Version 1)
Quarter: 2023Q4

REPORT INFORMATION
  Report Type: Spontaneous
  Country: CN (occurrence: CN)
  Receive Date: 20231201
  Receipt Date: 20231201
  Transmission Date: 20240110
  Serious: Yes (Other)
  Sender: FDA-Public Use
  Company Number: CN-JNJFOC-20231167842

PATIENT
  Sex: Female

DRUGS (1)
  1. RISPERDAL [Suspect]
     Active Substance: RISPERIDONE
     Indication: Schizophrenia
     Dosage: HAD TAKEN RISPERIDONE TABLETS (RISPERDAL) FOR MORE THAN 40 YEARS
     Route: 048
     Dates: start: 20231121

REACTIONS (4)
  - Drug dependence [Recovered/Resolved]
  - Mental disorder [Recovered/Resolved]
  - Nerve injury [Recovered/Resolved]
  - Insomnia [Recovered/Resolved]
